FAERS Safety Report 4285859-3 (Version None)
Quarter: 2004Q1

REPORT INFORMATION
  Report Type: 
  Country: None (occurrence: None)
  Receive Date: 20040203
  Receipt Date: 20040126
  Transmission Date: 20041129
  Serious: No
  Sender: FDA-Public Use
  Company Number: 04H-107-0248636-00

PATIENT
  Sex: Female

DRUGS (11)
  1. MORPHINE SUL INJ [Suspect]
     Indication: ANALGESIC EFFECT
     Dosage: 1 MG, ONCE, EPIDURAL
     Route: 008
  2. CLONIDINE [Suspect]
     Indication: ANALGESIC EFFECT
     Dosage: 150 MCG, EPIDURAL
     Route: 008
  3. RINGER-LACTATE SOLUTION ^FRESENIUS^ [Concomitant]
  4. MIDAZOLAM HCL [Concomitant]
  5. XYLOCAINE W/ EPINEPHRINE [Concomitant]
  6. FENTANYL [Concomitant]
  7. THIOPENTAL [Concomitant]
  8. SUXAMETHONIUM CHLORIDE [Concomitant]
  9. ENFLURANE [Concomitant]
  10. OXYGEN [Concomitant]
  11. BUPIVACAINE [Concomitant]

REACTIONS (1)
  - PROCEDURAL HYPOTENSION [None]
